FAERS Safety Report 6220585-2 (Version None)
Quarter: 2009Q2

REPORT INFORMATION
  Report Type: 
  Country: None (occurrence: None)
  Receive Date: 20090610
  Receipt Date: 20090529
  Transmission Date: 20091009
  Serious: Yes (Hospitalization)
  Sender: FDA-Public Use
  Company Number: IT-PFIZER INC-2009220510

PATIENT
  Age: 52 Year

DRUGS (1)
  1. SALAZOPYRIN [Suspect]
     Indication: SPONDYLOARTHROPATHY
     Dosage: 1500 MG, 1X/DAY
     Route: 048
     Dates: start: 20080815

REACTIONS (5)
  - ARTHRALGIA [None]
  - EOSINOPHILIA [None]
  - HEPATIC ENZYME INCREASED [None]
  - PYREXIA [None]
  - RASH [None]
